FAERS Safety Report 6882317-4 (Version None)
Quarter: 2010Q3

REPORT INFORMATION
  Report Type: 
  Country: None (occurrence: None)
  Receive Date: 20100729
  Receipt Date: 20090922
  Transmission Date: 20110219
  Serious: No
  Sender: FDA-Public Use
  Company Number: US-MYLANLABS-2009S1016659

PATIENT
  Age: 60 Year
  Sex: Male

DRUGS (3)
  1. LEVOTHYROXINE SODIUM [Suspect]
     Indication: HYPOTHYROIDISM
     Route: 048
     Dates: start: 20090101, end: 20090717
  2. LEVOTHYROXINE SODIUM [Suspect]
  3. LEVOXYL [Suspect]
     Route: 048
     Dates: start: 20090718

REACTIONS (1)
  - PIGMENTATION DISORDER [None]
